FAERS Safety Report 14188616 (Version 2)
Quarter: 2017Q4

REPORT INFORMATION
  Report Type: Report from Study
  Country: CA (occurrence: CA)
  Receive Date: 20171114
  Receipt Date: 20171128
  Transmission Date: 20180321
  Serious: Yes (Death, Hospitalization)
  Sender: FDA-Public Use
  Company Number: CA-ACTELION-A-NJ2017-162066

PATIENT
  Age: 72 Year
  Sex: Male

DRUGS (14)
  1. ATORVASTATIN [Concomitant]
     Active Substance: ATORVASTATIN
     Dosage: UNK, QD
  2. INSPRA [Concomitant]
     Active Substance: EPLERENONE
  3. ALOPURINOL [Concomitant]
     Active Substance: ALLOPURINOL
     Dosage: 300 MG, QAM
  4. OPSUMIT [Suspect]
     Active Substance: MACITENTAN
     Indication: PULMONARY ARTERIAL HYPERTENSION
     Dosage: 10 MG, QD
     Route: 048
     Dates: start: 20170911, end: 20171107
  5. CALCIUM [Concomitant]
     Active Substance: CALCIUM
     Dosage: UNK, Q1WEEK
  6. ALENDRONATE [Concomitant]
     Active Substance: ALENDRONATE SODIUM
     Dosage: UNK, Q1WEEK
  7. FUROSEMIDE. [Concomitant]
     Active Substance: FUROSEMIDE
     Dosage: 80 MG, UNK
  8. TYLENOL [Concomitant]
     Active Substance: ACETAMINOPHEN
     Dosage: 500 MG, PRN
  9. ADCIRCA [Concomitant]
     Active Substance: TADALAFIL
  10. VITAMIN D [Concomitant]
     Active Substance: CHOLECALCIFEROL
  11. WARFARIN [Concomitant]
     Active Substance: WARFARIN
  12. SPIRONOLACTONE. [Concomitant]
     Active Substance: SPIRONOLACTONE
     Dosage: 400 MG, UNK
  13. MORPHINE [Concomitant]
     Active Substance: MORPHINE
     Dosage: 10 MG, UNK
  14. POTASSIUM [Concomitant]
     Active Substance: POTASSIUM
     Dosage: UNK, BID

REACTIONS (6)
  - Osteoporosis [Not Recovered/Not Resolved]
  - Pain [Not Recovered/Not Resolved]
  - Death [Fatal]
  - Disease progression [Not Recovered/Not Resolved]
  - Oxygen consumption increased [Not Recovered/Not Resolved]
  - Spinal fracture [Not Recovered/Not Resolved]

NARRATIVE: CASE EVENT DATE: 20171018
